FAERS Safety Report 5262097-9 (Version None)
Quarter: 2007Q1

REPORT INFORMATION
  Report Type: 
  Country: None (occurrence: None)
  Receive Date: 20070311
  Receipt Date: 20070228
  Transmission Date: 20070707
  Serious: Yes (Disabling)
  Sender: FDA-Public Use
  Company Number: 2006UW22406

PATIENT
  Age: 18 Year
  Sex: Female
  Weight: 114.5 kg

DRUGS (3)
  1. SEROQUEL [Suspect]
     Indication: DEPRESSION
     Route: 048
     Dates: start: 19980101
  2. LIPITOR [Concomitant]
     Indication: BLOOD CHOLESTEROL INCREASED
  3. LIPITOR [Concomitant]
     Indication: HYPERLIPIDAEMIA

REACTIONS (2)
  - DIABETES MELLITUS [None]
  - MENTAL RETARDATION SEVERITY UNSPECIFIED [None]
